FAERS Safety Report 6897159-3 (Version None)
Quarter: 2010Q3

REPORT INFORMATION
  Report Type: 
  Country: None (occurrence: None)
  Receive Date: 20100802
  Receipt Date: 20070424
  Transmission Date: 20110219
  Serious: No
  Sender: FDA-Public Use
  Company Number: US-PFIZER INC-2007032808

PATIENT
  Sex: Male
  Weight: 84 kg

DRUGS (4)
  1. LYRICA [Suspect]
     Indication: NEUROPATHY PERIPHERAL
     Dates: start: 20070413
  2. ZYPREXA [Concomitant]
     Dosage: FREQUENCY: 4-5 TIMES INTERVAL: DAILY
  3. ATIVAN [Concomitant]
  4. ALBUTEROL [Concomitant]

REACTIONS (3)
  - DRUG INEFFECTIVE [None]
  - DYSKINESIA [None]
  - EUPHORIC MOOD [None]
